FAERS Safety Report 8407003-0 (Version None)
Quarter: 2012Q2

REPORT INFORMATION
  Report Type: 
  Country: None (occurrence: None)
  Receive Date: 20120529
  Receipt Date: 20080530
  Transmission Date: 20120825
  Serious: No
  Sender: FDA-Public Use
  Company Number: 000475

PATIENT
  Age: 82 Year
  Sex: Male

DRUGS (10)
  1. PLETAL [Suspect]
     Indication: INTERMITTENT CLAUDICATION
     Dosage: 100 MG, BID
     Route: 048
     Dates: start: 20070427, end: 20070720
  2. ISOSORBIDE DINITRATE [Concomitant]
  3. SPIRONOLACTONE [Concomitant]
  4. TAMSULOSIN HYDROCHLORIDE [Concomitant]
  5. REPAGLINIDE [Concomitant]
  6. ATORVASTATIN CALCIUM [Concomitant]
  7. VALSARTAN [Concomitant]
  8. ALLOPURINOL [Concomitant]
  9. METFORMIN HYDROCHLORIDE [Concomitant]
  10. ASPIRIN [Concomitant]

REACTIONS (3)
  - RENAL IMPAIRMENT [None]
  - GLOMERULAR FILTRATION RATE DECREASED [None]
  - DEHYDRATION [None]
